FAERS Safety Report 6660736-9 (Version None)
Quarter: 2010Q1

REPORT INFORMATION
  Report Type: 
  Country: None (occurrence: None)
  Receive Date: 20100331
  Receipt Date: 20100104
  Transmission Date: 20100710
  Serious: Yes (Death)
  Sender: FDA-Public Use
  Company Number: US-BAYER-201016837GPV

PATIENT
  Age: 41 Year
  Sex: Male

DRUGS (4)
  1. ALPRAZOLAM [Suspect]
     Route: 048
  2. ACETAMINOPHEN W/DIPHENHYDRAMINE [Suspect]
     Route: 048
  3. COCAINE [Suspect]
     Route: 065
  4. VALPROIC ACID [Suspect]
     Route: 048

REACTIONS (1)
  - DRUG TOXICITY [None]
